FAERS Safety Report 18369565 (Version 1)
Quarter: 2020Q4

REPORT INFORMATION
  Report Type: Spontaneous
  Country: JP (occurrence: JP)
  Receive Date: 20201012
  Receipt Date: 20201012
  Transmission Date: 20210114
  Serious: Yes (Other)
  Sender: FDA-Public Use
  Company Number: JP-LUPIN PHARMACEUTICALS INC.-2020-01800

PATIENT
  Age: 51 Year
  Sex: Female

DRUGS (3)
  1. LANTHANUM CARBONATE. [Suspect]
     Active Substance: LANTHANUM CARBONATE
     Dosage: UNK (FORMULATION: ORAL DISPERSIBLE TABLET)
     Route: 048
  2. LANTHANUM CARBONATE. [Suspect]
     Active Substance: LANTHANUM CARBONATE
     Indication: HYPERPHOSPHATAEMIA
     Dosage: UNK (FORMULATION: CHEWABLE TABLET)
     Route: 048
  3. LANTHANUM CARBONATE. [Suspect]
     Active Substance: LANTHANUM CARBONATE
     Dosage: UNK (FORMULATION: GRANULES) SWITCHED 5 YEARS AGO

REACTIONS (2)
  - Cough [Unknown]
  - Accidental exposure to product [Unknown]
